FAERS Safety Report 15955047 (Version 1)
Quarter: 2019Q1

REPORT INFORMATION
  Report Type: Spontaneous
  Country: US (occurrence: US)
  Receive Date: 20190213
  Receipt Date: 20190213
  Transmission Date: 20190417
  Serious: No
  Sender: FDA-Public Use
  Company Number: US-PFIZER INC-2019055667

PATIENT
  Age: 63 Year
  Sex: Male
  Weight: 126.1 kg

DRUGS (1)
  1. LYRICA [Suspect]
     Active Substance: PREGABALIN
     Indication: FIBROMYALGIA
     Dosage: 400 MG, DAILY (ONE AT BREAKFAST, TWO AT 4PM, AND ONE AT NIGHT)
     Route: 048

REACTIONS (2)
  - Pain [Unknown]
  - Product use issue [Unknown]
